FAERS Safety Report 6802002-4 (Version None)
Quarter: 2010Q2

REPORT INFORMATION
  Report Type: 
  Country: None (occurrence: None)
  Receive Date: 20100629
  Receipt Date: 20100624
  Transmission Date: 20101027
  Serious: Yes (Other)
  Sender: FDA-Public Use
  Company Number: PHHY2010NL41653

PATIENT
  Sex: Male
  Weight: 74 kg

DRUGS (2)
  1. EXELON [Suspect]
     Dosage: 4.6 MG, QD
     Route: 062
     Dates: start: 20100315, end: 20100518
  2. CALCICHEW [Concomitant]
     Dosage: 100 MG/800 IU VITAMIN D

REACTIONS (1)
  - HEPATITIS CHOLESTATIC [None]
